FAERS Safety Report 5273145-4 (Version None)
Quarter: 2007Q1

REPORT INFORMATION
  Report Type: 
  Country: None (occurrence: None)
  Receive Date: 20070322
  Receipt Date: 20070310
  Transmission Date: 20070707
  Serious: Yes (Other)
  Sender: FDA-Public Use
  Company Number: DE-PFIZER INC-2007019528

PATIENT
  Age: 49 Year
  Sex: Female

DRUGS (3)
  1. CABASERIL [Suspect]
     Indication: PARKINSON'S DISEASE
     Dosage: DAILY DOSE:4MG
     Route: 048
  2. L-DOPA [Concomitant]
  3. SELEGILINE HCL [Concomitant]

REACTIONS (1)
  - CARDIAC VALVE DISEASE [None]
